FAERS Safety Report 9098622 (Version 3)
Quarter: 2014Q2

REPORT INFORMATION
  Report Type: Report from Study
  Country: US (occurrence: US)
  Receive Date: 20130213
  Receipt Date: 20140319
  Transmission Date: 20141212
  Serious: Yes (Hospitalization)
  Sender: FDA-Public Use
  Company Number: US-CELGENEUS-163-CC292-13020690

PATIENT
  Age: 78 Year
  Sex: Male
  Weight: 103.15 kg

DRUGS (31)
  1. CC-292 [Suspect]
     Indication: CHRONIC LYMPHOCYTIC LEUKAEMIA
     Dosage: 750 MILLIGRAM
     Route: 048
     Dates: start: 20130123, end: 20130204
  2. LENALIDOMIDE [Suspect]
     Indication: CHRONIC LYMPHOCYTIC LEUKAEMIA
     Dosage: 10 MILLIGRAM
     Route: 048
     Dates: start: 20130116, end: 20130204
  3. NORVASC [Concomitant]
     Indication: HYPERTENSION
     Dosage: 5 MILLIGRAM
     Route: 048
     Dates: start: 20120227
  4. ATIVAN [Concomitant]
     Indication: NAUSEA
     Dosage: .5 MILLIGRAM
     Route: 048
     Dates: start: 20120327
  5. COUMADIN [Concomitant]
     Indication: DEEP VEIN THROMBOSIS
     Dosage: 5 MILLIGRAM
     Route: 048
     Dates: start: 20120706
  6. NEURONTIN [Concomitant]
     Indication: NEUROPATHY PERIPHERAL
     Dosage: 100 MILLIGRAM
     Route: 048
     Dates: start: 20130103
  7. ELAVIL [Concomitant]
     Indication: DEPRESSION
     Dosage: 25 MILLIGRAM
     Route: 048
     Dates: start: 20120227
  8. CELEXA [Concomitant]
     Indication: DEPRESSION
     Dosage: 20 MILLIGRAM
     Route: 048
     Dates: start: 20120227
  9. PEPTO-BISMOL [Concomitant]
     Indication: GASTROOESOPHAGEAL REFLUX DISEASE
     Dosage: 20 MILLILITER
     Route: 048
     Dates: start: 20120227
  10. REGLAN [Concomitant]
     Indication: GASTROOESOPHAGEAL REFLUX DISEASE
     Dosage: 10 MILLIGRAM
     Route: 048
     Dates: start: 20120227
  11. COMPAZINE [Concomitant]
     Indication: NAUSEA
     Dosage: 10 MILLIGRAM
     Route: 048
     Dates: start: 20120319
  12. NORMAL SALINE [Concomitant]
     Indication: PROPHYLAXIS AGAINST DEHYDRATION
     Dosage: .9 PERCENT
     Route: 041
     Dates: start: 20130204
  13. BACTRIM [Concomitant]
     Indication: INFECTION PROPHYLAXIS
     Dosage: 1 TABLET
     Route: 048
     Dates: start: 20120914
  14. LOTRISONE [Concomitant]
     Indication: RASH
     Dosage: 1 PERCENT
     Route: 061
     Dates: start: 20121220
  15. ZOCOR [Concomitant]
     Indication: DYSLIPIDAEMIA
     Dosage: 80 MILLIGRAM
     Route: 048
     Dates: start: 20120227
  16. ZOVIRAX [Concomitant]
     Indication: PROPHYLAXIS
     Dosage: 800 MILLIGRAM
     Route: 048
     Dates: start: 20120313
  17. ZOVIRAX [Concomitant]
     Dosage: 1200 MILLIGRAM
     Route: 048
  18. MAALOX [Concomitant]
     Indication: GASTROOESOPHAGEAL REFLUX DISEASE
     Dosage: 20 MILLILITER
     Route: 048
     Dates: start: 20120227
  19. TYLENOL [Concomitant]
     Indication: ARTHRALGIA
     Dosage: 100 MILLIGRAM
     Route: 048
     Dates: start: 20120814
  20. TYLENOL [Concomitant]
     Indication: PAIN IN EXTREMITY
  21. GOLD BOND ORIGINAL STRENGTH [Concomitant]
     Indication: RASH
     Route: 061
     Dates: start: 20120515
  22. FERROUS SULFATE [Concomitant]
     Indication: ANAEMIA
     Dosage: 325 MILLIGRAM
     Route: 048
     Dates: start: 20130108
  23. LOVENOX [Concomitant]
     Indication: THROMBOSIS PROPHYLAXIS
     Dosage: 40 MILLIGRAM
     Route: 058
     Dates: start: 20130204
  24. PROTONIX [Concomitant]
     Indication: GASTROOESOPHAGEAL REFLUX PROPHYLAXIS
     Dosage: 40 MILLIGRAM
     Route: 048
     Dates: start: 20130205
  25. NORCO [Concomitant]
     Indication: PAIN IN EXTREMITY
     Dosage: 5/325MG
     Route: 048
     Dates: start: 20130103, end: 20130116
  26. BENADRYL ANTI-ITCH GEL [Concomitant]
     Indication: RASH
     Dosage: .45 PERCENT
     Route: 061
     Dates: start: 20120814
  27. ALLOPURINOL [Concomitant]
     Indication: GOUT
     Dosage: 300 MILLIGRAM
     Route: 048
     Dates: start: 20120227
  28. BENAZEPRIL [Concomitant]
     Indication: PRODUCT USED FOR UNKNOWN INDICATION
     Dosage: 40 MILLIGRAM
     Route: 048
  29. ARIXTRA [Concomitant]
     Indication: PRODUCT USED FOR UNKNOWN INDICATION
     Dosage: .6 MILLILITER
     Route: 058
  30. INDOMETHACIN [Concomitant]
     Indication: PRODUCT USED FOR UNKNOWN INDICATION
     Dosage: 75 MILLIGRAM
     Route: 048
  31. IRON [Concomitant]
     Indication: PRODUCT USED FOR UNKNOWN INDICATION
     Dosage: 66 MILLIGRAM
     Route: 048

REACTIONS (1)
  - Hallucination [Recovered/Resolved]
